FAERS Safety Report 9198860 (Version 1)
Quarter: 2013Q1

REPORT INFORMATION
  Report Type: Spontaneous
  Country: FR (occurrence: FR)
  Receive Date: 20130329
  Receipt Date: 20130329
  Transmission Date: 20140127
  Serious: Yes (Hospitalization)
  Sender: FDA-Public Use
  Company Number: FR-GE HEALTHCARE MEDICAL DIAGNOSTICS-OMPQ-NO-1303S-0369

PATIENT
  Age: 68 Year
  Sex: Male

DRUGS (8)
  1. OMNIPAQUE [Suspect]
     Indication: PRODUCT USED FOR UNKNOWN INDICATION
     Route: 042
     Dates: start: 20130128, end: 20130128
  2. OMNIPAQUE [Suspect]
     Indication: DIAGNOSTIC PROCEDURE
  3. CARDENSIEL [Concomitant]
  4. SOLUPRED [Concomitant]
  5. CELLCEPT [Concomitant]
  6. PROGRAF [Concomitant]
  7. BACTRIM FORTE [Concomitant]
  8. INEXIUM [Concomitant]

REACTIONS (1)
  - Blood creatinine increased [Unknown]
